FAERS Safety Report 7086060-0 (Version None)
Quarter: 2010Q4

REPORT INFORMATION
  Report Type: 
  Country: None (occurrence: None)
  Receive Date: 20101105
  Receipt Date: 20101103
  Transmission Date: 20110411
  Serious: Yes (Hospitalization)
  Sender: FDA-Public Use
  Company Number: A0890544A

PATIENT
  Age: 77 Year
  Sex: Female

DRUGS (8)
  1. ADVAIR DISKUS 100/50 [Suspect]
     Indication: CHRONIC OBSTRUCTIVE PULMONARY DISEASE
     Dosage: 1BLS TWICE PER DAY
     Route: 055
  2. MYLANTA [Concomitant]
  3. MECLIZINE [Concomitant]
  4. FUROSEMIDE [Concomitant]
  5. CLONIDINE [Concomitant]
  6. PLAVIX [Concomitant]
  7. UNSPECIFIED MEDICATION [Concomitant]
  8. PRAVASTATIN [Concomitant]

REACTIONS (4)
  - ASTHENIA [None]
  - DIZZINESS [None]
  - FALL [None]
  - RENAL FAILURE [None]
